FAERS Safety Report 6059395-8 (Version None)
Quarter: 2009Q1

REPORT INFORMATION
  Report Type: 
  Country: None (occurrence: None)
  Receive Date: 20090128
  Receipt Date: 20090128
  Transmission Date: 20090719
  Serious: Yes (Other)
  Sender: FDA-Public Use
  Company Number: None

PATIENT
  Age: 57 Year
  Sex: Female
  Weight: 81.6475 kg

DRUGS (5)
  1. NEXIUM [Suspect]
     Indication: DISEASE RECURRENCE
     Dosage: 40 MG ONCE IN MORNING PO
     Route: 048
     Dates: start: 20090102, end: 20090126
  2. NEXIUM [Suspect]
     Indication: GASTRIC ULCER
     Dosage: 40 MG ONCE IN MORNING PO
     Route: 048
     Dates: start: 20090102, end: 20090126
  3. NEXIUM [Suspect]
     Indication: GASTROOESOPHAGEAL REFLUX DISEASE
     Dosage: 40 MG ONCE IN MORNING PO
     Route: 048
     Dates: start: 20090102, end: 20090126
  4. NEXIUM [Suspect]
     Indication: HIATUS HERNIA
     Dosage: 40 MG ONCE IN MORNING PO
     Route: 048
     Dates: start: 20090102, end: 20090126
  5. NEXIUM [Suspect]
     Indication: OESOPHAGITIS
     Dosage: 40 MG ONCE IN MORNING PO
     Route: 048
     Dates: start: 20090102, end: 20090126

REACTIONS (6)
  - DIARRHOEA [None]
  - FLATULENCE [None]
  - HEART RATE IRREGULAR [None]
  - MIGRAINE [None]
  - RASH [None]
  - SOMNOLENCE [None]
